FAERS Safety Report 6594168-9 (Version None)
Quarter: 2010Q1

REPORT INFORMATION
  Report Type: 
  Country: None (occurrence: None)
  Receive Date: 20100222
  Receipt Date: 20100219
  Transmission Date: 20100710
  Serious: No
  Sender: FDA-Public Use
  Company Number: SE-ROCHE-684828

PATIENT
  Age: 60 Year
  Sex: Male

DRUGS (6)
  1. AVASTIN [Suspect]
     Indication: DRUG USE FOR UNKNOWN INDICATION
     Dosage: DOSAGE: 16 ML3, DRUG: AVASTIN CONCENTRATE FOR SOLUTION FOR INFUSION 25 MG/ML
     Route: 042
     Dates: start: 20091217, end: 20100115
  2. ALVEDON [Concomitant]
     Dosage: DRUG; ALVEDON ORODISPERSIBLE TABLET
  3. OMEPRAZOL [Concomitant]
     Dosage: DRUG: OMEPRAZOL SANDOZ GASTRORESISTANT CAPSULE HARD
     Route: 048
  4. MOVICOL [Concomitant]
     Dosage: DRUG: MOVICOL POWDER FOR ORAL SOLUTION SACHET
     Route: 048
  5. BETAPRED [Concomitant]
     Route: 048
  6. ZOFRAN [Concomitant]
     Dosage: DRUG: ZOFRAN FC TABLET.
     Route: 048

REACTIONS (1)
  - GOITRE [None]
